FAERS Safety Report 8819847 (Version 1)
Quarter: 2012Q4

REPORT INFORMATION
  Report Type: 
  Country: US (occurrence: US)
  Receive Date: 20121001
  Receipt Date: 20121001
  Transmission Date: 20130627
  Serious: Yes (Other)
  Sender: FDA-Public Use
  Company Number: US-ROCHE-1129756

PATIENT
  Sex: Male

DRUGS (7)
  1. HERCEPTIN [Suspect]
     Indication: PROSTATE CANCER
     Route: 065
  2. ADRIAMYCIN [Concomitant]
     Route: 065
  3. ADRIAMYCIN [Concomitant]
     Route: 042
  4. FLUOROURACIL [Concomitant]
  5. VINCRISTINE [Concomitant]
  6. ESTRAMUSTINE [Concomitant]
  7. EPOGEN [Concomitant]

REACTIONS (9)
  - Transient ischaemic attack [Unknown]
  - Muscular weakness [Recovering/Resolving]
  - Speech disorder [Unknown]
  - Hyposmia [Recovered/Resolved]
  - Swelling [Unknown]
  - Ascites [Unknown]
  - Scrotal oedema [Unknown]
  - Bone marrow oedema [Unknown]
  - Tenderness [Unknown]
